FAERS Safety Report 21439452 (Version 1)
Quarter: 2022Q4

REPORT INFORMATION
  Report Type: Spontaneous
  Country: US (occurrence: US)
  Receive Date: 20221011
  Receipt Date: 20221011
  Transmission Date: 20230113
  Serious: No
  Sender: FDA-Public Use
  Company Number: US-PFIZER INC-202201210324

PATIENT
  Age: 39 Year
  Sex: Female
  Weight: 72.57 kg

DRUGS (1)
  1. PAXLOVID [Suspect]
     Active Substance: NIRMATRELVIR\RITONAVIR
     Indication: COVID-19 treatment
     Dosage: 2 TABLETS SAME TIME IN MORNING AND IN EVENING DOSE 3 TABLETS, 2X/DAY

REACTIONS (4)
  - Rash pruritic [Unknown]
  - Dysgeusia [Unknown]
  - Dyspnoea [Unknown]
  - Incorrect dose administered [Unknown]
